FAERS Safety Report 24057492 (Version 1)
Quarter: 2024Q3

REPORT INFORMATION
  Report Type: Spontaneous
  Country: US (occurrence: US)
  Receive Date: 20240706
  Receipt Date: 20240706
  Transmission Date: 20241016
  Serious: Yes (Other)
  Sender: AMGEN
  Company Number: US-AMGEN-USASP2024131432

PATIENT
  Sex: Male

DRUGS (4)
  1. RITUXIMAB [Suspect]
     Active Substance: RITUXIMAB
     Indication: Castleman^s disease
     Dosage: UNK
     Route: 065
  2. PREDNISONE [Suspect]
     Active Substance: PREDNISONE
     Indication: Castleman^s disease
     Dosage: UNK
     Route: 065
  3. SILTUXIMAB [Concomitant]
     Active Substance: SILTUXIMAB
     Indication: Castleman^s disease
     Dosage: UNK
     Route: 065
  4. HUMAN IMMUNOGLOBULIN G [Concomitant]
     Active Substance: HUMAN IMMUNOGLOBULIN G
     Indication: Castleman^s disease
     Dosage: UNK
     Route: 042

REACTIONS (7)
  - Non-Hodgkin^s lymphoma [Unknown]
  - Acute kidney injury [Unknown]
  - Acinetobacter bacteraemia [Unknown]
  - Paraneoplastic pemphigus [Unknown]
  - Secondary adrenocortical insufficiency [Unknown]
  - Drug ineffective for unapproved indication [Unknown]
  - Off label use [Unknown]
